FAERS Safety Report 5370377-1 (Version None)
Quarter: 2007Q2

REPORT INFORMATION
  Report Type: 
  Country: None (occurrence: None)
  Receive Date: 20070625
  Receipt Date: 20070625
  Transmission Date: 20071010
  Serious: Yes (Life-Threatening, Hospitalization)
  Sender: FDA-Public Use
  Company Number: None

PATIENT
  Sex: Male
  Weight: 84 kg

DRUGS (3)
  1. FAMOTIDINE [Suspect]
     Indication: PROPHYLAXIS
     Dosage: 20MG IV DAILY
  2. FAMOTIDINE [Suspect]
     Indication: STRESS ULCER
     Dosage: 20MG IV DAILY
  3. INTRAAORTIC BALLOON PUMP [Concomitant]

REACTIONS (3)
  - HAEMODYNAMIC INSTABILITY [None]
  - PLATELET COUNT DECREASED [None]
  - POST PROCEDURAL COMPLICATION [None]
